FAERS Safety Report 5186214-4 (Version None)
Quarter: 2006Q4

REPORT INFORMATION
  Report Type: 
  Country: None (occurrence: None)
  Receive Date: 20061220
  Receipt Date: 20061211
  Transmission Date: 20070319
  Serious: Yes (Other)
  Sender: FDA-Public Use
  Company Number: US-ROCHE-474542

PATIENT
  Age: 49 Year
  Sex: Female

DRUGS (7)
  1. PEGASYS [Suspect]
     Indication: HEPATITIS C
     Route: 065
     Dates: start: 20030615, end: 20030615
  2. PEGASYS [Suspect]
     Route: 065
     Dates: start: 20060721
  3. RIBAVIRIN [Suspect]
     Indication: HEPATITIS C
     Route: 048
     Dates: start: 20030615, end: 20030615
  4. RIBAVIRIN [Suspect]
     Route: 048
     Dates: start: 20060721
  5. COREG [Concomitant]
  6. LOTREL [Concomitant]
  7. LUNESTA [Concomitant]

REACTIONS (6)
  - ARRHYTHMIA [None]
  - BLOOD IRON INCREASED [None]
  - CARDIOMYOPATHY [None]
  - DEPRESSION [None]
  - HEPATIC CIRRHOSIS [None]
  - NO THERAPEUTIC RESPONSE [None]
